FAERS Safety Report 7679775-4 (Version None)
Quarter: 2011Q3

REPORT INFORMATION
  Report Type: 
  Country: None (occurrence: None)
  Receive Date: 20110812
  Receipt Date: 20110808
  Transmission Date: 20111222
  Serious: Yes (Hospitalization, Other)
  Sender: FDA-Public Use
  Company Number: US-JNJFOC-20110303650

PATIENT
  Sex: Female

DRUGS (9)
  1. PREDNISONE [Suspect]
     Indication: STEROID THERAPY
     Route: 048
  2. FLUOXETINE [Concomitant]
     Indication: DEPRESSION
     Route: 065
  3. DOXYCYCLINE [Concomitant]
     Indication: ANTIBIOTIC THERAPY
     Route: 065
  4. AZITHROMYCIN [Concomitant]
     Indication: ANTIBIOTIC THERAPY
     Route: 065
  5. LEVAQUIN [Suspect]
     Indication: URINARY TRACT INFECTION
     Route: 048
     Dates: start: 20050101, end: 20080101
  6. METHYLPREDNISOLONE [Suspect]
     Indication: INFLAMMATION
     Route: 048
  7. LUNESTA [Concomitant]
     Indication: SLEEP DISORDER THERAPY
     Route: 065
  8. SIMVASTATIN [Concomitant]
     Route: 065
  9. CIPROFLOXACIN [Suspect]
     Indication: ANTIBIOTIC THERAPY
     Route: 048

REACTIONS (2)
  - LIGAMENT RUPTURE [None]
  - TENOSYNOVITIS STENOSANS [None]
